FAERS Safety Report 20581275 (Version 2)
Quarter: 2022Q2

REPORT INFORMATION
  Report Type: Other
  Country: US (occurrence: None)
  Receive Date: 20220311
  Receipt Date: 20220407
  Transmission Date: 20220721
  Serious: Yes (Death)
  Sender: FDA-Public Use
  Company Number: US-ROCHE-3045443

PATIENT
  Age: 50 Year
  Sex: Male
  Weight: 106.24 kg

DRUGS (6)
  1. OCREVUS [Suspect]
     Active Substance: OCRELIZUMAB
     Indication: Relapsing multiple sclerosis
     Dosage: MOST RECENT DOSE WAS RECEIVED ON 03/MAR/2022, LAST DATE OF TREATMENT- 04/DEC/2019
     Route: 042
     Dates: start: 2018
  2. CLONAZEPAM [Suspect]
     Active Substance: CLONAZEPAM
     Indication: Product used for unknown indication
     Route: 065
  3. TYSABRI [Concomitant]
     Active Substance: NATALIZUMAB
  4. AVONEX [Concomitant]
     Active Substance: INTERFERON BETA-1A
  5. COPAXONE [Concomitant]
     Active Substance: GLATIRAMER ACETATE
  6. TECFIDERA [Concomitant]
     Active Substance: DIMETHYL FUMARATE

REACTIONS (1)
  - Myocardial infarction [Fatal]

NARRATIVE: CASE EVENT DATE: 20220303
